FAERS Safety Report 24658617 (Version 1)
Quarter: 2024Q4

REPORT INFORMATION
  Report Type: Spontaneous
  Country: US (occurrence: None)
  Receive Date: 20241122
  Receipt Date: 20241122
  Transmission Date: 20250114
  Serious: No
  Sender: Public
  Company Number: None

PATIENT
  Sex: Male

DRUGS (1)
  1. LENALIDOMIDE [Suspect]
     Active Substance: LENALIDOMIDE
     Indication: Plasma cell myeloma in remission
     Dosage: FREQUENCY : DAILY;?
     Route: 048
     Dates: start: 20230407

REACTIONS (7)
  - Nasopharyngitis [None]
  - Full blood count decreased [None]
  - Constipation [None]
  - Diarrhoea [None]
  - Muscle spasms [None]
  - Blood creatine decreased [None]
  - Pericardial effusion [None]
